FAERS Safety Report 5478283-9 (Version None)
Quarter: 2007Q4

REPORT INFORMATION
  Report Type: 
  Country: None (occurrence: None)
  Receive Date: 20071005
  Receipt Date: 20071001
  Transmission Date: 20080405
  Serious: Yes (Hospitalization)
  Sender: FDA-Public Use
  Company Number: ES-AVENTIS-200719057GDDC

PATIENT
  Age: 83 Year
  Sex: Female

DRUGS (2)
  1. DAONIL [Suspect]
     Route: 048
     Dates: start: 20060101, end: 20060725
  2. DIANBEN [Concomitant]
     Route: 048
     Dates: start: 20060101, end: 20060725

REACTIONS (2)
  - DISORIENTATION [None]
  - HYPOGLYCAEMIA [None]
